FAERS Safety Report 5468003-6 (Version None)
Quarter: 2007Q3

REPORT INFORMATION
  Report Type: 
  Country: None (occurrence: None)
  Receive Date: 20070926
  Receipt Date: 20070917
  Transmission Date: 20080115
  Serious: Yes (Congenital Anomaly, Other)
  Sender: FDA-Public Use
  Company Number: HQWYE724106OCT06

PATIENT
  Sex: Male

DRUGS (5)
  1. EUPANTOL [Suspect]
     Route: 064
  2. ELISOR [Suspect]
     Route: 064
  3. PROGRAF [Suspect]
     Route: 064
  4. PREDNISONE [Suspect]
     Route: 064
  5. AZATHIOPRINE SODIUM [Suspect]
     Route: 064

REACTIONS (12)
  - BRAIN MALFORMATION [None]
  - CLEFT LIP [None]
  - CLEFT PALATE [None]
  - CONGENITAL CENTRAL NERVOUS SYSTEM ANOMALY [None]
  - DEFORMITY THORAX [None]
  - DRUG EXPOSURE DURING PREGNANCY [None]
  - DYSMORPHISM [None]
  - LIMB MALFORMATION [None]
  - PLACENTAL DISORDER [None]
  - RENAL HYPERTROPHY [None]
  - SKIN HYPERTROPHY [None]
  - TALIPES [None]
